FAERS Safety Report 5526336-9 (Version None)
Quarter: 2007Q4

REPORT INFORMATION
  Report Type: 
  Country: None (occurrence: None)
  Receive Date: 20071121
  Receipt Date: 20071121
  Transmission Date: 20080405
  Serious: Yes (Other)
  Sender: FDA-Public Use
  Company Number: None

PATIENT
  Sex: Female
  Weight: 58.9676 kg

DRUGS (2)
  1. ACIPHEX [Suspect]
     Indication: GASTRITIS PROPHYLAXIS
     Dosage: 20MG QD PO
     Route: 048
     Dates: start: 20070517, end: 20070824
  2. ACIPHEX [Suspect]
     Indication: OSTEOARTHRITIS
     Dosage: 20MG QD PO
     Route: 048
     Dates: start: 20070517, end: 20070824

REACTIONS (8)
  - BLOOD CREATINE PHOSPHOKINASE INCREASED [None]
  - CHEST PAIN [None]
  - DIASTOLIC HYPERTENSION [None]
  - EXTRAPYRAMIDAL DISORDER [None]
  - PALPITATIONS [None]
  - PARAESTHESIA [None]
  - TINNITUS [None]
  - WEIGHT INCREASED [None]
